FAERS Safety Report 8576505-9 (Version None)
Quarter: 2012Q3

REPORT INFORMATION
  Report Type: 
  Country: None (occurrence: None)
  Receive Date: 20120807
  Receipt Date: 20120727
  Transmission Date: 20120928
  Serious: Yes (Death, Life-Threatening, Hospitalization)
  Sender: FDA-Public Use
  Company Number: GB-GLAXOSMITHKLINE-B0814317A

PATIENT
  Age: 55 Year
  Sex: Male
  Weight: 100 kg

DRUGS (1)
  1. ORLISTAT [Suspect]
     Indication: WEIGHT DECREASED
     Route: 048
     Dates: start: 20111001, end: 20110101

REACTIONS (8)
  - PANCREATIC CARCINOMA [None]
  - CONSTIPATION [None]
  - BONE LESION [None]
  - ABDOMINAL PAIN UPPER [None]
  - CENTRAL NERVOUS SYSTEM LESION [None]
  - CHOLELITHIASIS [None]
  - HEPATIC LESION [None]
  - DEEP VEIN THROMBOSIS [None]
